FAERS Safety Report 25252317 (Version 2)
Quarter: 2025Q2

REPORT INFORMATION
  Report Type: Spontaneous
  Country: US (occurrence: US)
  Receive Date: 20250429
  Receipt Date: 20250522
  Transmission Date: 20250716
  Serious: No
  Sender: PFIZER
  Company Number: US-PFIZER INC-202500088828

PATIENT
  Age: 41 Year
  Sex: Male

DRUGS (11)
  1. LITFULO [Suspect]
     Active Substance: RITLECITINIB TOSYLATE
     Dosage: 50 MG, 1X/DAY
     Route: 048
     Dates: start: 20250401
  2. DUPIXENT [Concomitant]
     Active Substance: DUPILUMAB
  3. OLUMIANT [Concomitant]
     Active Substance: BARICITINIB
  4. EPINEPHRINE [Concomitant]
     Active Substance: EPINEPHRINE
  5. MONTELUKAST [Concomitant]
     Active Substance: MONTELUKAST
  6. VENTOLIN HFA [Concomitant]
     Active Substance: ALBUTEROL SULFATE
  7. TRIAMCINOLONE [Concomitant]
     Active Substance: TRIAMCINOLONE
  8. BREO ELLIPTA [Concomitant]
     Active Substance: FLUTICASONE FUROATE\VILANTEROL TRIFENATATE
  9. EUCRISA [Concomitant]
     Active Substance: CRISABOROLE
  10. ANASTROZOLE [Concomitant]
     Active Substance: ANASTROZOLE
  11. ALBUTEROL [Concomitant]
     Active Substance: ALBUTEROL

REACTIONS (1)
  - Asthma [Recovering/Resolving]
